FAERS Safety Report 17492278 (Version 1)
Quarter: 2020Q1

REPORT INFORMATION
  Report Type: Spontaneous
  Country: DE (occurrence: DE)
  Receive Date: 20200303
  Receipt Date: 20200303
  Transmission Date: 20200409
  Serious: Yes (Other)
  Sender: FDA-Public Use
  Company Number: DE-PFIZER INC-2020092445

PATIENT
  Sex: Female
  Weight: 58 kg

DRUGS (2)
  1. VENLAFAXINE HCL [Suspect]
     Active Substance: VENLAFAXINE HYDROCHLORIDE
     Indication: ANXIETY
     Dosage: UNK (1X1, RETARD CAPSULES)
     Route: 048
     Dates: start: 20190708
  2. VENLAFAXINE HCL [Suspect]
     Active Substance: VENLAFAXINE HYDROCHLORIDE
     Indication: FATIGUE

REACTIONS (4)
  - Epistaxis [Recovered/Resolved]
  - Oedema [Unknown]
  - Alcoholism [Unknown]
  - Binge eating [Unknown]

NARRATIVE: CASE EVENT DATE: 20190807
